FAERS Safety Report 5422518-5 (Version None)
Quarter: 2007Q3

REPORT INFORMATION
  Report Type: 
  Country: None (occurrence: None)
  Receive Date: 20070730
  Receipt Date: 20070514
  Transmission Date: 20080115
  Serious: Yes (Hospitalization, Other)
  Sender: FDA-Public Use
  Company Number: 200711209BWH

PATIENT
  Age: 68 Year
  Sex: Male

DRUGS (5)
  1. AVELOX [Suspect]
     Indication: SINUSITIS
     Dosage: 400 MG, QD, ORAL
     Route: 048
     Dates: start: 20070301
  2. TOPROL-XL [Concomitant]
  3. ADVAIR DISKUS 100/50 [Concomitant]
  4. LIPITOR [Concomitant]
  5. ASPIRIN [Concomitant]

REACTIONS (10)
  - ASTHENIA [None]
  - CHEST DISCOMFORT [None]
  - DIZZINESS [None]
  - ELECTROCARDIOGRAM QT PROLONGED [None]
  - HYPERHIDROSIS [None]
  - HYPOAESTHESIA [None]
  - HYPOTENSION [None]
  - PARAESTHESIA [None]
  - PRESYNCOPE [None]
  - VENTRICULAR EXTRASYSTOLES [None]
